FAERS Safety Report 21389814 (Version 3)
Quarter: 2022Q4

REPORT INFORMATION
  Report Type: Report from Study
  Country: CH (occurrence: CH)
  Receive Date: 20220929
  Receipt Date: 20221027
  Transmission Date: 20230113
  Serious: Yes (Other)
  Sender: FDA-Public Use
  Company Number: CH-NEBO-PC009145

PATIENT
  Sex: Male
  Weight: 4.37 kg

DRUGS (3)
  1. IRON ISOMALTOSIDE 1000 [Suspect]
     Active Substance: IRON ISOMALTOSIDE 1000
     Indication: Iron deficiency
     Route: 050
     Dates: start: 20220516, end: 20220516
  2. FLATULEX [SIMETICONE] [Concomitant]
     Route: 050
  3. NATALBEN PLUS [Concomitant]
     Route: 050

REACTIONS (3)
  - Bradycardia foetal [Recovered/Resolved]
  - Foetal exposure during pregnancy [Recovered/Resolved]
  - Foetal distress syndrome [Recovered/Resolved]

NARRATIVE: CASE EVENT DATE: 20220516
